FAERS Safety Report 6785997-7 (Version None)
Quarter: 2010Q2

REPORT INFORMATION
  Report Type: 
  Country: None (occurrence: None)
  Receive Date: 20100623
  Receipt Date: 20100611
  Transmission Date: 20101027
  Serious: Yes (Other)
  Sender: FDA-Public Use
  Company Number: FR-PFIZER INC-2010073353

PATIENT
  Age: 71 Year
  Sex: Male

DRUGS (3)
  1. TRIFLUCAN [Suspect]
  2. COUMADIN [Suspect]
     Dosage: UNK
     Dates: end: 20100609
  3. METFORMIN HYDROCHLORIDE [Concomitant]

REACTIONS (1)
  - INTERNATIONAL NORMALISED RATIO INCREASED [None]
